FAERS Safety Report 6392575-0 (Version None)
Quarter: 2009Q4

REPORT INFORMATION
  Report Type: 
  Country: None (occurrence: None)
  Receive Date: 20091007
  Receipt Date: 20090720
  Transmission Date: 20100525
  Serious: No
  Sender: FDA-Public Use
  Company Number: US-ALLERGAN-0908899US

PATIENT
  Age: 65 Year
  Sex: Female

DRUGS (5)
  1. LATISSE [Suspect]
     Indication: HYPOTRICHOSIS
     Dosage: 1 GTT, QHS
     Route: 061
     Dates: start: 20090615, end: 20090622
  2. CLONAZEPAM [Concomitant]
  3. FINACEA [Concomitant]
     Indication: ROSACEA
     Dosage: UNK, BID
     Route: 061
     Dates: start: 20090501
  4. PREMARIN [Concomitant]
  5. ZOLOFT [Concomitant]

REACTIONS (1)
  - EYE DISORDER [None]
